FAERS Safety Report 5708084-5 (Version None)
Quarter: 2008Q2

REPORT INFORMATION
  Report Type: 
  Country: None (occurrence: None)
  Receive Date: 20080414
  Receipt Date: 20080122
  Transmission Date: 20081010
  Serious: Yes (Death, Hospitalization)
  Sender: FDA-Public Use
  Company Number: 2007BI026221

PATIENT
  Sex: Female

DRUGS (3)
  1. TYSABRI [Suspect]
     Indication: NEUROMYELITIS OPTICA
     Dates: start: 20070201, end: 20071101
  2. MITOXANTRONE [Concomitant]
  3. INTERFERONS [Concomitant]

REACTIONS (15)
  - APHASIA [None]
  - BRAIN INJURY [None]
  - BRAIN STEM SYNDROME [None]
  - CARDIAC ARREST [None]
  - CARDIAC DISORDER [None]
  - CIRCULATORY COLLAPSE [None]
  - CONDITION AGGRAVATED [None]
  - CONFUSIONAL STATE [None]
  - DISEASE COMPLICATION [None]
  - DYSPNOEA [None]
  - GENERAL PHYSICAL HEALTH DETERIORATION [None]
  - HALLUCINATION [None]
  - NEUROMYELITIS OPTICA [None]
  - SEPSIS [None]
  - URINARY TRACT INFECTION [None]
